FAERS Safety Report 8258450-1 (Version None)
Quarter: 2012Q1

REPORT INFORMATION
  Report Type: 
  Country: None (occurrence: None)
  Receive Date: 20120322
  Receipt Date: 20120201
  Transmission Date: 20120608
  Serious: Yes (Hospitalization)
  Sender: FDA-Public Use
  Company Number: UTC-014104

PATIENT
  Age: 48 Year
  Sex: Female
  Weight: 70.45 kg

DRUGS (5)
  1. TYVASO [Suspect]
     Indication: PULMONARY HYPERTENSION
     Dosage: 216 MCG (54 MCG,4 IN 1 D),INHALATION
     Route: 055
     Dates: start: 20100602
  2. REVATIO [Concomitant]
  3. COUMADIN [Concomitant]
  4. TRACLEER [Concomitant]
  5. DIURETICS (DIURETICS) [Concomitant]

REACTIONS (3)
  - DIARRHOEA [None]
  - VOMITING [None]
  - ASTHMA [None]
